FAERS Safety Report 8277846-5 (Version None)
Quarter: 2012Q2

REPORT INFORMATION
  Report Type: 
  Country: None (occurrence: None)
  Receive Date: 20120412
  Receipt Date: 20120410
  Transmission Date: 20120825
  Serious: No
  Sender: FDA-Public Use
  Company Number: US-TEVA-332963USA

PATIENT
  Sex: Female
  Weight: 81.72 kg

DRUGS (4)
  1. EFFEXOR [Concomitant]
     Indication: DEPRESSION
  2. PLAN B ONE-STEP [Suspect]
     Indication: POST COITAL CONTRACEPTION
     Dosage: 1.5 MILLIGRAM;
     Route: 048
     Dates: start: 20120315, end: 20120315
  3. TRILEPTAL [Concomitant]
     Indication: CONVULSION
  4. LEVOTHYROXINE SODIUM [Concomitant]
     Indication: HYPOTHYROIDISM

REACTIONS (1)
  - MENSTRUATION IRREGULAR [None]
